FAERS Safety Report 7127426-X (Version None)
Quarter: 2010Q4

REPORT INFORMATION
  Report Type: 
  Country: None (occurrence: None)
  Receive Date: 20101129
  Receipt Date: 20091001
  Transmission Date: 20110411
  Serious: No
  Sender: FDA-Public Use
  Company Number: US-PFIZER INC-2009278873

PATIENT
  Sex: Male
  Weight: 68 kg

DRUGS (3)
  1. REVATIO [Suspect]
     Dosage: 20 MG, 3X/DAY
     Route: 048
     Dates: start: 20070101
  2. LORTAB [Concomitant]
     Dosage: UNK
  3. XANAX [Concomitant]
     Indication: HYPERTENSION
     Dosage: UNK

REACTIONS (2)
  - DRUG INEFFECTIVE [None]
  - SEXUAL DYSFUNCTION [None]
